FAERS Safety Report 10286599 (Version 2)
Quarter: 2014Q3

REPORT INFORMATION
  Report Type: Report from Study
  Country: CN (occurrence: CN)
  Receive Date: 20140709
  Receipt Date: 20140826
  Transmission Date: 20150326
  Serious: Yes (Death, Hospitalization)
  Sender: FDA-Public Use
  Company Number: PHHY2014CN084274

PATIENT
  Sex: Male

DRUGS (3)
  1. TASIGNA [Suspect]
     Active Substance: NILOTINIB
     Dosage: 400 MG, QD
     Route: 048
  2. TASIGNA [Suspect]
     Active Substance: NILOTINIB
     Indication: CHRONIC MYELOID LEUKAEMIA
     Dosage: 400 MG, BID
     Route: 048
     Dates: start: 201002
  3. ERYTHROPOIETIN [Concomitant]
     Active Substance: ERYTHROPOIETIN

REACTIONS (8)
  - Blast crisis in myelogenous leukaemia [Unknown]
  - Dyspnoea [Unknown]
  - Headache [Unknown]
  - Platelet count decreased [Unknown]
  - Cerebral haemorrhage [Fatal]
  - Blindness [Unknown]
  - Coma [Unknown]
  - Dehydration [Unknown]
